FAERS Safety Report 4462767-6 (Version None)
Quarter: 2004Q3

REPORT INFORMATION
  Report Type: 
  Country: None (occurrence: None)
  Receive Date: 20040927
  Receipt Date: 20040913
  Transmission Date: 20050211
  Serious: No
  Sender: FDA-Public Use
  Company Number: 04P-163-0273274-00

PATIENT
  Age: 34 Year
  Sex: Female
  Weight: 106.5953 kg

DRUGS (11)
  1. HUMIRA [Suspect]
     Indication: RHEUMATOID ARTHRITIS
     Dosage: 40 MG, 1 IN 2 WK, SUBCUTANEOUS
     Route: 058
     Dates: start: 20040505
  2. BENAZEPHIL HYDROCHLORIDE [Concomitant]
  3. DEPAKOTE ER [Concomitant]
  4. QUETIAPINE [Concomitant]
  5. TEMAZEPAM [Concomitant]
  6. OXCARBAZEPINE [Concomitant]
  7. ISONIAZID [Concomitant]
  8. FOLIC ACID [Concomitant]
  9. NAPROXEN [Concomitant]
  10. ESOMEPRAZOLE [Concomitant]
  11. MOMETASONE FUROATE [Concomitant]

REACTIONS (1)
  - HEPATITIS C [None]
